FAERS Safety Report 22049350 (Version 1)
Quarter: 2023Q1

REPORT INFORMATION
  Report Type: Spontaneous
  Country: FR (occurrence: FR)
  Receive Date: 20230301
  Receipt Date: 20230301
  Transmission Date: 20230417
  Serious: Yes (Hospitalization)
  Sender: FDA-Public Use
  Company Number: None

PATIENT
  Age: 87 Year
  Sex: Female
  Weight: 58 kg

DRUGS (3)
  1. LOVENOX [Suspect]
     Active Substance: ENOXAPARIN SODIUM
     Indication: Thrombosis prophylaxis
     Dosage: 2000IU/D
     Route: 058
     Dates: start: 20230105, end: 20230109
  2. ASPIRIN [Suspect]
     Active Substance: ASPIRIN
     Indication: Prophylaxis
     Dosage: UNKNOWN DOSE
     Route: 048
     Dates: start: 20230103, end: 20230110
  3. GADOTERATE MEGLUMINE [Suspect]
     Active Substance: GADOTERATE MEGLUMINE
     Indication: Magnetic resonance imaging
     Dosage: UNK
     Route: 042
     Dates: start: 20230108, end: 20230108

REACTIONS (2)
  - Condition aggravated [Recovering/Resolving]
  - Symmetrical drug-related intertriginous and flexural exanthema [Recovering/Resolving]

NARRATIVE: CASE EVENT DATE: 20230106
